FAERS Safety Report 9075648 (Version 1)
Quarter: 2013Q1

REPORT INFORMATION
  Report Type: Report from Study
  Country: US (occurrence: US)
  Receive Date: 20130129
  Receipt Date: 20130129
  Transmission Date: 20140127
  Serious: No
  Sender: FDA-Public Use
  Company Number: US-ABBOTT-12P-163-0943562-00

PATIENT
  Age: 54 Year
  Sex: Female

DRUGS (5)
  1. HUMIRA 40 MG/0.8 ML PEN [Suspect]
     Indication: RHEUMATOID ARTHRITIS
     Dates: start: 20120106
  2. METHOTREXATE [Concomitant]
     Indication: PRODUCT USED FOR UNKNOWN INDICATION
     Dosage: 10 - 2.5MG TABLETS WEEKLY
  3. METFORMIN [Concomitant]
     Indication: DIABETES MELLITUS
     Dosage: IN THE AM
     Route: 048
  4. METFORMIN [Concomitant]
     Dosage: PM MEAL
  5. ASPIRIN [Concomitant]
     Indication: PROPHYLAXIS
     Dosage: DAILY
     Route: 048

REACTIONS (1)
  - Arthralgia [Not Recovered/Not Resolved]
